FAERS Safety Report 9561191 (Version 1)
Quarter: 2013Q3

REPORT INFORMATION
  Report Type: Spontaneous
  Country: US (occurrence: US)
  Receive Date: 20130927
  Receipt Date: 20130927
  Transmission Date: 20140515
  Serious: No
  Sender: FDA-Public Use
  Company Number: US-BAYER-2013-116342

PATIENT
  Age: 38 Year
  Sex: Female

DRUGS (1)
  1. BETASERON [Suspect]
     Indication: MULTIPLE SCLEROSIS
     Dosage: STANDARD TITRATION, QOD
     Route: 058
     Dates: start: 20130904, end: 20130919

REACTIONS (4)
  - Influenza like illness [None]
  - Muscle spasms [None]
  - Pain [None]
  - Adverse drug reaction [None]
